FAERS Safety Report 24288490 (Version 3)
Quarter: 2024Q4

REPORT INFORMATION
  Report Type: Spontaneous
  Country: US (occurrence: US)
  Receive Date: 20240906
  Receipt Date: 20241015
  Transmission Date: 20250115
  Serious: No
  Sender: CHATTEM
  Company Number: US-OPELLA-2024OHG029864

PATIENT
  Age: 81 Year
  Sex: Male
  Weight: 72.57 kg

DRUGS (1)
  1. ALLEGRA-D 24 HOUR [Suspect]
     Active Substance: FEXOFENADINE HYDROCHLORIDE\PSEUDOEPHEDRINE HYDROCHLORIDE
     Indication: Sinus congestion
     Dosage: STRENGTH: 180 MG+240 MG, 1 OR 2 PER FAY
     Route: 048
     Dates: start: 202408, end: 202409

REACTIONS (2)
  - Drug ineffective [Unknown]
  - No adverse event [Unknown]
